FAERS Safety Report 12381218 (Version 2)
Quarter: 2016Q2

REPORT INFORMATION
  Report Type: Spontaneous
  Country: US (occurrence: US)
  Receive Date: 20160518
  Receipt Date: 20160526
  Transmission Date: 20160815
  Serious: Yes (Hospitalization)
  Sender: FDA-Public Use
  Company Number: US-ASTELLAS-2016US019416

PATIENT
  Sex: Female

DRUGS (5)
  1. PROGRAF [Suspect]
     Active Substance: TACROLIMUS\TACROLIMUS ANHYDROUS
     Indication: TRANSPLANT
     Dosage: 5 MG TWICE DAILY (1 MG AND 5 MG CAPSULE)
     Route: 048
     Dates: start: 201408
  2. SIROLIMUS. [Concomitant]
     Active Substance: SIROLIMUS
     Indication: PRODUCT USED FOR UNKNOWN INDICATION
     Dosage: 2 MG ONCE DAILY (1 MG AND 2 MG TAB)
     Route: 048
     Dates: start: 201508
  3. PROGRAF [Suspect]
     Active Substance: TACROLIMUS\TACROLIMUS ANHYDROUS
     Indication: TRANSPLANT
     Dosage: 5 MG TWICE DAILY (1 MG AND 5 MG CAPSULE)
     Route: 048
     Dates: start: 201408
  4. PROGRAF [Suspect]
     Active Substance: TACROLIMUS\TACROLIMUS ANHYDROUS
     Dosage: 5 MG (1 MG X 5 CAPSULES), TWICE DAILY
     Route: 048
     Dates: start: 20150220
  5. SIROLIMUS. [Concomitant]
     Active Substance: SIROLIMUS
     Indication: PRODUCT USED FOR UNKNOWN INDICATION
     Dosage: 2 MG ONCE DAILY (1 MG AND 2 MG TAB)
     Route: 048
     Dates: start: 201508

REACTIONS (4)
  - Malaise [Unknown]
  - Feeding disorder [Unknown]
  - Asthenia [Unknown]
  - Abdominal discomfort [Unknown]
